FAERS Safety Report 7439204-2 (Version None)
Quarter: 2011Q2

REPORT INFORMATION
  Report Type: 
  Country: None (occurrence: None)
  Receive Date: 20110427
  Receipt Date: 20110415
  Transmission Date: 20111010
  Serious: Yes (Life-Threatening, Other)
  Sender: FDA-Public Use
  Company Number: GB-ELI_LILLY_AND_COMPANY-GB201104004547

PATIENT
  Age: 66 Year
  Sex: Male
  Weight: 78.6 kg

DRUGS (8)
  1. ACTOPLUS MET [Concomitant]
  2. FORTEO [Suspect]
     Indication: OSTEONECROSIS OF JAW
     Dosage: 20 UG, UNK
     Route: 058
     Dates: start: 20101101, end: 20110316
  3. CALCEOS [Concomitant]
  4. CIPROFLOXACIN [Concomitant]
     Dosage: 250 MG, BID
  5. METFORMIN [Concomitant]
  6. ERYTHROPOIETIN HUMAN [Concomitant]
  7. SIMVASTATIN [Concomitant]
  8. OMEPRAZOLE [Concomitant]

REACTIONS (3)
  - PARAPROTEINAEMIA [None]
  - MYELOMA RECURRENCE [None]
  - HAEMOGLOBIN DECREASED [None]
